FAERS Safety Report 7770162-7 (Version None)
Quarter: 2011Q3

REPORT INFORMATION
  Report Type: 
  Country: None (occurrence: None)
  Receive Date: 20110922
  Receipt Date: 20110127
  Transmission Date: 20111222
  Serious: No
  Sender: FDA-Public Use
  Company Number: US-ASTRAZENECA-2011SE04782

PATIENT
  Age: 59 Year
  Sex: Female
  Weight: 64.4 kg

DRUGS (2)
  1. TRAZODONE HCL [Concomitant]
  2. SEROQUEL [Suspect]
     Indication: DEPRESSION
     Route: 048

REACTIONS (3)
  - TREMOR [None]
  - CRYING [None]
  - DRUG DOSE OMISSION [None]
